FAERS Safety Report 9336778 (Version 2)
Quarter: 2013Q2

REPORT INFORMATION
  Report Type: Report from Study
  Country: AT (occurrence: AT)
  Receive Date: 20130607
  Receipt Date: 20130607
  Transmission Date: 20140414
  Serious: Yes (Death, Hospitalization)
  Sender: FDA-Public Use
  Company Number: PHHO2013AT005871

PATIENT
  Sex: 0

DRUGS (6)
  1. BLINDED BKM120 [Suspect]
     Indication: BREAST CANCER METASTATIC
     Dosage: CODE NOT BROKEN
     Dates: start: 20130422, end: 20130426
  2. BLINDED NO TREATMENT RECEIVED [Suspect]
     Indication: BREAST CANCER METASTATIC
     Dosage: CODE NOT BROKEN
     Dates: start: 20130422, end: 20130426
  3. BLINDED PLACEBO [Suspect]
     Indication: BREAST CANCER METASTATIC
     Dosage: CODE NOT BROKEN
     Dates: start: 20130422, end: 20130426
  4. EPIRUBICIN [Suspect]
     Indication: BREAST CANCER METASTATIC
     Dosage: 132 MG, UNK
     Route: 042
     Dates: start: 20130517
  5. COMPARATOR FULVESTRANT [Suspect]
     Indication: BREAST CANCER METASTATIC
     Dosage: 500 MG, UNK
     Route: 058
     Dates: start: 20130319, end: 20130415
  6. CYCLOPHOSPHAMIDE [Suspect]
     Indication: BREAST CANCER METASTATIC
     Dosage: 132 MG, UNK
     Route: 042
     Dates: start: 20130517

REACTIONS (10)
  - General physical health deterioration [Recovering/Resolving]
  - Respiratory tract infection [Fatal]
  - Type 2 diabetes mellitus [None]
  - Fatigue [None]
  - Anxiety [None]
  - Nausea [None]
  - Decreased appetite [None]
  - Metastases to liver [None]
  - Dyspnoea [None]
  - Malignant neoplasm progression [None]
